FAERS Safety Report 9540717 (Version 1)
Quarter: 2013Q3

REPORT INFORMATION
  Report Type: Spontaneous
  Country: CN (occurrence: CN)
  Receive Date: 20130920
  Receipt Date: 20130920
  Transmission Date: 20140515
  Serious: Yes (Other)
  Sender: FDA-Public Use
  Company Number: CN-PFIZER INC-2013267545

PATIENT
  Age: 13 Day
  Sex: Female

DRUGS (1)
  1. CYTOSAR-U [Suspect]
     Indication: LEUKAEMIA
     Dosage: 1 G, TWICE DAILY
     Route: 041
     Dates: start: 20121017, end: 20121018

REACTIONS (3)
  - Pyrexia [Recovering/Resolving]
  - Cyanosis [Recovering/Resolving]
  - Chills [Recovering/Resolving]
